FAERS Safety Report 19274290 (Version 1)
Quarter: 2021Q2

REPORT INFORMATION
  Report Type: Spontaneous
  Country: US (occurrence: US)
  Receive Date: 20210519
  Receipt Date: 20210519
  Transmission Date: 20210717
  Serious: Yes (Other)
  Sender: FDA-Public Use
  Company Number: None

PATIENT
  Age: 72 Year
  Sex: Female
  Weight: 85.05 kg

DRUGS (4)
  1. PREDNISONE 5MG [Concomitant]
     Active Substance: PREDNISONE
     Dates: start: 20210518
  2. TYLENOL 650MG [Concomitant]
     Dates: start: 20210518
  3. GAMUNEX?C [Suspect]
     Active Substance: HUMAN IMMUNOGLOBULIN G
     Indication: CHRONIC INFLAMMATORY DEMYELINATING POLYRADICULONEUROPATHY
     Dosage: ?          OTHER FREQUENCY:DAILY FOR 2 DAYS;?
     Route: 041
     Dates: start: 20210517, end: 20210518
  4. BENADRYL 25MG [Concomitant]

REACTIONS (2)
  - Drug intolerance [None]
  - Pain [None]
